FAERS Safety Report 14860199 (Version 1)
Quarter: 2018Q2

REPORT INFORMATION
  Report Type: Report from Study
  Country: US (occurrence: US)
  Receive Date: 20180508
  Receipt Date: 20180508
  Transmission Date: 20180711
  Serious: Yes (Hospitalization)
  Sender: FDA-Public Use
  Company Number: US-GILEAD-2018-0335101

PATIENT
  Age: 48 Year
  Sex: Male

DRUGS (4)
  1. AMBRISENTAN [Suspect]
     Active Substance: AMBRISENTAN
     Indication: PRODUCT USED FOR UNKNOWN INDICATION
     Dosage: 10 MG, QD
     Route: 048
     Dates: start: 20171020
  2. SILDENAFIL                         /01367502/ [Concomitant]
     Active Substance: SILDENAFIL
  3. LASIX [Concomitant]
     Active Substance: FUROSEMIDE
  4. POTASSIUM                          /00031402/ [Concomitant]
     Active Substance: POTASSIUM

REACTIONS (4)
  - Chest pain [Recovered/Resolved]
  - Bronchitis [Recovered/Resolved]
  - Weight increased [Unknown]
  - Sinusitis [Recovered/Resolved]

NARRATIVE: CASE EVENT DATE: 20180410
